FAERS Safety Report 14129429 (Version 3)
Quarter: 2017Q4

REPORT INFORMATION
  Report Type: Spontaneous
  Country: RU (occurrence: RU)
  Receive Date: 20171026
  Receipt Date: 20171205
  Transmission Date: 20180321
  Serious: Yes (Disabling, Other)
  Sender: FDA-Public Use
  Company Number: RU-JNJFOC-20171017921

PATIENT
  Age: 5 Decade
  Sex: Male
  Weight: 70 kg

DRUGS (14)
  1. SIMPONI [Suspect]
     Active Substance: GOLIMUMAB
     Indication: ANKYLOSING SPONDYLITIS
     Route: 058
     Dates: start: 201704, end: 201708
  2. SIMPONI [Suspect]
     Active Substance: GOLIMUMAB
     Indication: ARTHRITIS
     Route: 058
     Dates: start: 201704, end: 201708
  3. INDOMETHACIN. [Concomitant]
     Active Substance: INDOMETHACIN
     Indication: UVEITIS
     Dosage: START DATE: DEC-JAN/2017
     Route: 058
     Dates: start: 2017
  4. SIMPONI [Suspect]
     Active Substance: GOLIMUMAB
     Indication: UVEITIS
     Route: 058
     Dates: start: 201704, end: 201708
  5. ETANERCEPT [Concomitant]
     Active Substance: ETANERCEPT
     Indication: ARTHRITIS
     Route: 058
     Dates: start: 201512
  6. METHOTREXATE. [Concomitant]
     Active Substance: METHOTREXATE
     Indication: ARTHRITIS
     Dosage: START DATE: DEC-JAN/2017
     Route: 058
     Dates: start: 201701
  7. ETANERCEPT [Concomitant]
     Active Substance: ETANERCEPT
     Indication: ANKYLOSING SPONDYLITIS
     Route: 058
     Dates: start: 201512
  8. METHOTREXATE. [Concomitant]
     Active Substance: METHOTREXATE
     Indication: UVEITIS
     Dosage: START DATE: DEC-JAN/2017
     Route: 058
     Dates: start: 201701
  9. FOLIC ACID. [Concomitant]
     Active Substance: FOLIC ACID
     Indication: ANKYLOSING SPONDYLITIS
     Route: 065
     Dates: start: 201701
  10. ETANERCEPT [Concomitant]
     Active Substance: ETANERCEPT
     Indication: UVEITIS
     Route: 058
     Dates: start: 201512
  11. INDOMETHACIN. [Concomitant]
     Active Substance: INDOMETHACIN
     Indication: ARTHRITIS
     Dosage: START DATE: DEC-JAN/2017
     Route: 058
     Dates: start: 2017
  12. INDOMETHACIN. [Concomitant]
     Active Substance: INDOMETHACIN
     Indication: ANKYLOSING SPONDYLITIS
     Dosage: START DATE: DEC-JAN/2017
     Route: 058
     Dates: start: 2017
  13. BISOPROLOL [Concomitant]
     Active Substance: BISOPROLOL
     Indication: HYPERTENSION
     Dosage: IN THE MORNING
     Route: 058
  14. METHOTREXATE. [Concomitant]
     Active Substance: METHOTREXATE
     Indication: ANKYLOSING SPONDYLITIS
     Dosage: START DATE: DEC-JAN/2017
     Route: 058
     Dates: start: 201701

REACTIONS (3)
  - Ankylosing spondylitis [Not Recovered/Not Resolved]
  - Osteoarthritis [Not Recovered/Not Resolved]
  - Drug ineffective [Not Recovered/Not Resolved]

NARRATIVE: CASE EVENT DATE: 2017
